FAERS Safety Report 13833655 (Version 1)
Quarter: 2017Q3

REPORT INFORMATION
  Report Type: Spontaneous
  Country: CN (occurrence: CN)
  Receive Date: 20170804
  Receipt Date: 20170804
  Transmission Date: 20171127
  Serious: Yes (Other)
  Sender: FDA-Public Use
  Company Number: CN-ASTRAZENECA-2017SE79193

PATIENT
  Age: 55 Year
  Sex: Male

DRUGS (2)
  1. CRESTOR [Suspect]
     Active Substance: ROSUVASTATIN CALCIUM
     Indication: HYPERLIPIDAEMIA
     Route: 048
     Dates: start: 2017, end: 2017
  2. CRESTOR [Suspect]
     Active Substance: ROSUVASTATIN CALCIUM
     Indication: HYPERLIPIDAEMIA
     Route: 048
     Dates: start: 2017

REACTIONS (9)
  - Blood creatine phosphokinase increased [Unknown]
  - Angina pectoris [Unknown]
  - Blood bilirubin increased [Unknown]
  - Red blood cell count increased [Unknown]
  - Myocarditis [Unknown]
  - Haematuria [Unknown]
  - Blood urea increased [Unknown]
  - Blood uric acid increased [Unknown]
  - Bilirubin conjugated increased [Unknown]
